FAERS Safety Report 4532814-1 (Version None)
Quarter: 2004Q4

REPORT INFORMATION
  Report Type: 
  Country: None (occurrence: None)
  Receive Date: 20041221
  Receipt Date: 20041207
  Transmission Date: 20050328
  Serious: Yes (Disabling)
  Sender: FDA-Public Use
  Company Number: PHBS2004IT16642

PATIENT
  Age: 69 Year
  Sex: Female

DRUGS (2)
  1. ZOMETA [Suspect]
     Indication: MULTIPLE MYELOMA
     Dosage: 4 MG, QMO
  2. ZOMETA [Suspect]
     Dosage: 4 MG, QMO
     Route: 042
     Dates: start: 20030113, end: 20041108

REACTIONS (2)
  - AUTOLOGOUS BONE MARROW TRANSPLANTATION THERAPY [None]
  - OSTEONECROSIS [None]
